FAERS Safety Report 25412770 (Version 1)
Quarter: 2025Q2

REPORT INFORMATION
  Report Type: Spontaneous
  Country: PL (occurrence: PL)
  Receive Date: 20250609
  Receipt Date: 20250609
  Transmission Date: 20250717
  Serious: Yes (Other)
  Sender: ROCHE
  Company Number: PL-ROCHE-10000301817

PATIENT
  Age: 57 Year
  Sex: Female

DRUGS (5)
  1. ATEZOLIZUMAB [Suspect]
     Active Substance: ATEZOLIZUMAB
     Indication: Small cell lung cancer
     Route: 065
  2. ATEZOLIZUMAB [Suspect]
     Active Substance: ATEZOLIZUMAB
     Route: 065
  3. CARBOPLATIN [Suspect]
     Active Substance: CARBOPLATIN
     Indication: Small cell lung cancer
     Route: 065
  4. ETOPOSIDE [Suspect]
     Active Substance: ETOPOSIDE
     Indication: Small cell lung cancer
     Route: 065
  5. PREDNISONE [Concomitant]
     Active Substance: PREDNISONE

REACTIONS (8)
  - Neutropenia [Unknown]
  - Lymphadenopathy mediastinal [Unknown]
  - Blood thyroid stimulating hormone increased [Unknown]
  - Immune-mediated hypothyroidism [Unknown]
  - Immune-mediated gastritis [Recovering/Resolving]
  - Abdominal pain upper [Recovering/Resolving]
  - Neoplasm [Unknown]
  - Thyroid hormones decreased [Unknown]

NARRATIVE: CASE EVENT DATE: 20221201
